FAERS Safety Report 7068128-8 (Version None)
Quarter: 2010Q4

REPORT INFORMATION
  Report Type: 
  Country: None (occurrence: None)
  Receive Date: 20101028
  Receipt Date: 20101018
  Transmission Date: 20110411
  Serious: Yes (Hospitalization, Disabling, Other)
  Sender: FDA-Public Use
  Company Number: PHEH2008US07578

PATIENT
  Sex: Male

DRUGS (37)
  1. ZOMETA [Suspect]
     Indication: BONE DENSITY DECREASED
     Dosage: UNK, UNK
  2. OXYGEN THERAPY [Concomitant]
  3. OXYCONTIN [Concomitant]
  4. CHEMOTHERAPEUTICS NOS [Concomitant]
  5. NEUPOGEN [Concomitant]
  6. MOTRIN [Concomitant]
  7. TAXOTERE [Concomitant]
  8. COUMADIN [Concomitant]
  9. LISINOPRIL [Concomitant]
  10. DESYREL [Concomitant]
  11. AMBIEN [Concomitant]
  12. CASODEX [Concomitant]
  13. PLAVIX [Concomitant]
  14. LEUPROLIDE ACETATE [Concomitant]
  15. ASPIRIN [Concomitant]
  16. CALCIUM D SANDOZ [Concomitant]
  17. MULTI-VITAMINS VITAFIT [Concomitant]
  18. MITOXANTRONE [Concomitant]
  19. PREDNISONE [Concomitant]
  20. LOPRESSOR [Concomitant]
     Dosage: 25 MG BY MOUTH 2 TIMES DAILY
  21. ZESTORETIC [Concomitant]
     Dosage: UNK
  22. DESERIL [Concomitant]
     Dosage: UNK
  23. CADUET [Concomitant]
     Dosage: UNK
  24. AVANDAMET [Concomitant]
     Dosage: UNK
  25. STARLIX [Concomitant]
     Dosage: UNK
  26. NITROGLIN [Concomitant]
     Dosage: UNK
  27. PROTONIX [Concomitant]
     Dosage: UNK
  28. ZOCOR [Concomitant]
     Dosage: UNK
  29. LEVAQUIN [Concomitant]
  30. BLOOD CELLS, PACKED HUMAN [Concomitant]
     Dosage: UNK
     Dates: start: 20080224
  31. FLAGYL [Concomitant]
  32. LOMOTIL [Concomitant]
  33. KLOR-CON [Concomitant]
  34. TRAZODONE [Concomitant]
  35. ZOLOFT [Concomitant]
  36. AMARYL [Concomitant]
  37. HYDROCHLOROTHIAZIDE [Concomitant]

REACTIONS (62)
  - ACTIVITIES OF DAILY LIVING IMPAIRED [None]
  - ANAEMIA [None]
  - ANHEDONIA [None]
  - ANXIETY [None]
  - ASCITES [None]
  - ATAXIA [None]
  - ATELECTASIS [None]
  - BONE DISORDER [None]
  - BONE LESION [None]
  - CARDIOMEGALY [None]
  - CATHETERISATION CARDIAC ABNORMAL [None]
  - COLONIC POLYP [None]
  - CONFUSIONAL STATE [None]
  - CONSTIPATION [None]
  - CORONARY ARTERY DISEASE [None]
  - DECREASED APPETITE [None]
  - DEEP VEIN THROMBOSIS [None]
  - DEHYDRATION [None]
  - DEPRESSION [None]
  - DIARRHOEA [None]
  - DIVERTICULITIS [None]
  - DUPUYTREN'S CONTRACTURE [None]
  - DYSPNOEA [None]
  - FACE INJURY [None]
  - FAECAL INCONTINENCE [None]
  - FALL [None]
  - FLATULENCE [None]
  - GAIT DISTURBANCE [None]
  - GASTROOESOPHAGEAL REFLUX DISEASE [None]
  - GINGIVAL BLEEDING [None]
  - GYNAECOMASTIA [None]
  - HAEMOCHROMATOSIS [None]
  - HAEMORRHOIDS [None]
  - HEPATIC CIRRHOSIS [None]
  - HEPATIC STEATOSIS [None]
  - HERPES SIMPLEX [None]
  - HIATUS HERNIA [None]
  - HYPERKERATOSIS [None]
  - HYPOKALAEMIA [None]
  - HYPOTENSION [None]
  - INJURY [None]
  - LUNG INFILTRATION [None]
  - LUNG NEOPLASM [None]
  - MENTAL DISORDER [None]
  - METASTASES TO LIVER [None]
  - MITRAL VALVE INCOMPETENCE [None]
  - MOUTH ULCERATION [None]
  - NAUSEA [None]
  - NON-CARDIAC CHEST PAIN [None]
  - OEDEMA [None]
  - OESOPHAGITIS [None]
  - ORCHIDECTOMY [None]
  - OSTEONECROSIS OF JAW [None]
  - PAIN [None]
  - PAIN IN JAW [None]
  - PARACENTESIS [None]
  - PLEURAL EFFUSION [None]
  - SEPSIS [None]
  - SPINAL OSTEOARTHRITIS [None]
  - SPLENOMEGALY [None]
  - TOOTH FRACTURE [None]
  - URINARY INCONTINENCE [None]
